FAERS Safety Report 10021112 (Version 1)
Quarter: 2014Q1

REPORT INFORMATION
  Report Type: Spontaneous
  Country: US (occurrence: US)
  Receive Date: 20140319
  Receipt Date: 20140319
  Transmission Date: 20141002
  Serious: No
  Sender: FDA-Public Use
  Company Number: US-PFIZER INC-2014076631

PATIENT
  Age: 67 Year
  Sex: Female
  Weight: 113.38 kg

DRUGS (3)
  1. LYRICA [Suspect]
     Indication: DIABETIC NEUROPATHY
     Dosage: 75 MG, 3X/DAY
     Dates: end: 201403
  2. LYRICA [Interacting]
     Dosage: 75 MG, 3X/DAY
     Dates: start: 201403
  3. TRAZODONE [Interacting]
     Indication: ANXIETY
     Dosage: 50 MG, UNK

REACTIONS (7)
  - Drug interaction [Recovering/Resolving]
  - Dyspnoea [Recovering/Resolving]
  - Fatigue [Recovering/Resolving]
  - Impaired work ability [Recovering/Resolving]
  - Disturbance in attention [Recovering/Resolving]
  - Disorientation [Recovering/Resolving]
  - Pain in extremity [Unknown]
